FAERS Safety Report 7609902-6 (Version None)
Quarter: 2011Q3

REPORT INFORMATION
  Report Type: 
  Country: None (occurrence: None)
  Receive Date: 20110714
  Receipt Date: 20110705
  Transmission Date: 20111222
  Serious: Yes (Hospitalization, Other)
  Sender: FDA-Public Use
  Company Number: ZA-ELI_LILLY_AND_COMPANY-ZA201107002339

PATIENT
  Age: 19 Year
  Sex: Female

DRUGS (1)
  1. HUMULIN R [Suspect]
     Dosage: UNK
     Dates: start: 20110627, end: 20110627

REACTIONS (3)
  - INTENTIONAL OVERDOSE [None]
  - SUICIDE ATTEMPT [None]
  - WRONG DRUG ADMINISTERED [None]
